FAERS Safety Report 23954173 (Version 5)
Quarter: 2024Q3

REPORT INFORMATION
  Report Type: Spontaneous
  Country: JP (occurrence: JP)
  Receive Date: 20240609
  Receipt Date: 20240729
  Transmission Date: 20241017
  Serious: Yes (Life-Threatening)
  Sender: JOHNSON AND JOHNSON
  Company Number: JP-JNJFOC-20240620507

PATIENT
  Age: 72 Year
  Sex: Male

DRUGS (5)
  1. CANAGLIFLOZIN [Suspect]
     Active Substance: CANAGLIFLOZIN
     Indication: Type 2 diabetes mellitus
     Dosage: AT LEAST SINCE THREE YEARS
     Route: 048
     Dates: end: 20240512
  2. KREMEZIN [Concomitant]
     Active Substance: ACTIVATED CHARCOAL
     Indication: Chronic kidney disease
     Route: 048
     Dates: end: 20240512
  3. MITIGLINIDE CALCIUM HYDRATE\VOGLIBOSE [Concomitant]
     Active Substance: MITIGLINIDE CALCIUM HYDRATE\VOGLIBOSE
     Indication: Type 2 diabetes mellitus
     Route: 048
     Dates: end: 20240512
  4. FEBUXOSTAT [Concomitant]
     Active Substance: FEBUXOSTAT
     Indication: Hyperuricaemia
     Route: 048
     Dates: end: 20240512
  5. AMLODIPINE [Concomitant]
     Active Substance: AMLODIPINE BESYLATE
     Indication: Hypertension
     Route: 048
     Dates: end: 20240512

REACTIONS (2)
  - Cerebral infarction [Unknown]
  - Fournier^s gangrene [Unknown]

NARRATIVE: CASE EVENT DATE: 20240508
